FAERS Safety Report 23542089 (Version 1)
Quarter: 2024Q1

REPORT INFORMATION
  Report Type: Spontaneous
  Country: FR (occurrence: FR)
  Receive Date: 20240220
  Receipt Date: 20240220
  Transmission Date: 20240409
  Serious: Yes (Other)
  Sender: FDA-Public Use
  Company Number: FR-NOVOPROD-1175400

PATIENT
  Sex: Female

DRUGS (1)
  1. SAXENDA [Suspect]
     Active Substance: LIRAGLUTIDE
     Indication: Product used for unknown indication
     Dosage: UNK
     Dates: start: 202309

REACTIONS (8)
  - Depression [Unknown]
  - Rebound effect [Unknown]
  - Euphoric mood [Unknown]
  - Mania [Unknown]
  - Food craving [Unknown]
  - Decreased appetite [Unknown]
  - Fatigue [Unknown]
  - Inappropriate schedule of product administration [Unknown]
